FAERS Safety Report 25690902 (Version 1)
Quarter: 2025Q3

REPORT INFORMATION
  Report Type: Spontaneous
  Country: US (occurrence: None)
  Receive Date: 20250817
  Receipt Date: 20250817
  Transmission Date: 20251020
  Serious: Yes (Other)
  Sender: FDA-CTU
  Company Number: None

PATIENT
  Age: 48 Year
  Sex: Female
  Weight: 89.1 kg

DRUGS (7)
  1. MOUNJARO [Suspect]
     Active Substance: TIRZEPATIDE
     Indication: Type 2 diabetes mellitus
     Dosage: OTHER QUANTITY : 0.5 ML;?OTHER FREQUENCY : ONCE A WEEK;?
     Route: 058
     Dates: start: 20240220
  2. diclofenac sod dr 75mg twice daily [Concomitant]
  3. triamterene-hctz 37.5-25mg once daily [Concomitant]
  4. duloxetine hcl dr 60mg once daily [Concomitant]
  5. rosuvastatin calcium 10mg once daily [Concomitant]
  6. Mounjaro 7.5mg/0.5mL once weekly [Concomitant]
  7. certirizine 10mg once daily [Concomitant]

REACTIONS (5)
  - Diarrhoea [None]
  - Nausea [None]
  - Vomiting [None]
  - Abdominal pain [None]
  - Gallbladder disorder [None]

NARRATIVE: CASE EVENT DATE: 20241120
